FAERS Safety Report 19779517 (Version 2)
Quarter: 2021Q4

REPORT INFORMATION
  Report Type: Spontaneous
  Country: US (occurrence: US)
  Receive Date: 20210902
  Receipt Date: 20211008
  Transmission Date: 20220303
  Serious: No
  Sender: FDA-Public Use
  Company Number: US-PFIZER INC-2020119420

PATIENT
  Age: 82 Year
  Sex: Female

DRUGS (1)
  1. LYRICA [Suspect]
     Active Substance: PREGABALIN
     Dosage: 75 MG, 1X/DAY (TAKE ONE CAPSULE BY MOUTH AT BEDTIME)
     Route: 048

REACTIONS (4)
  - Pain [Unknown]
  - Arthropathy [Unknown]
  - Sensitivity to weather change [Unknown]
  - Product prescribing error [Unknown]
